FAERS Safety Report 9814404 (Version 2)
Quarter: 2015Q4

REPORT INFORMATION
  Report Type: Spontaneous
  Country: US (occurrence: US)
  Receive Date: 20140113
  Receipt Date: 20151207
  Transmission Date: 20160305
  Serious: No
  Sender: FDA-Public Use
  Company Number: US-TEVA-455620USA

PATIENT
  Age: 23 Year
  Sex: Female
  Weight: 84.9 kg

DRUGS (3)
  1. VICODIN [Concomitant]
     Active Substance: ACETAMINOPHEN\HYDROCODONE BITARTRATE
     Indication: PAIN
     Dates: start: 201202
  2. FENTORA [Suspect]
     Active Substance: FENTANYL CITRATE
     Indication: PAIN
  3. FENTORA [Suspect]
     Active Substance: FENTANYL CITRATE
     Indication: BREAKTHROUGH PAIN
     Dates: start: 201202, end: 201302

REACTIONS (4)
  - Dental caries [Not Recovered/Not Resolved]
  - Tooth fracture [Not Recovered/Not Resolved]
  - Toothache [Not Recovered/Not Resolved]
  - Product use issue [Unknown]

NARRATIVE: CASE EVENT DATE: 201310
